APPROVED DRUG PRODUCT: DESONATE
Active Ingredient: DESONIDE
Strength: 0.05% **Federal Register determination that product was not discontinued or withdrawn for safety or effectiveness reasons**
Dosage Form/Route: GEL;TOPICAL
Application: N021844 | Product #001
Applicant: LEO PHARMA AS
Approved: Oct 20, 2006 | RLD: Yes | RS: No | Type: DISCN